FAERS Safety Report 21859711 (Version 1)
Quarter: 2023Q1

REPORT INFORMATION
  Report Type: Spontaneous
  Country: US (occurrence: US)
  Receive Date: 20230113
  Receipt Date: 20230113
  Transmission Date: 20230418
  Serious: No
  Sender: FDA-Public Use
  Company Number: US-BEH-2023153935

PATIENT
  Age: 60 Year
  Sex: Female

DRUGS (22)
  1. PRIVIGEN [Suspect]
     Active Substance: HUMAN IMMUNOGLOBULIN G
     Indication: Congenital hypogammaglobulinaemia
     Dosage: 25 GRAM, QMT
     Route: 042
  2. ATROPINE SULFATE [Concomitant]
     Active Substance: ATROPINE SULFATE
  3. ALPHAGAN P [Concomitant]
     Active Substance: BRIMONIDINE TARTRATE
  4. LUMIGAN [Concomitant]
     Active Substance: BIMATOPROST
  5. PREDNISOLONE [Concomitant]
     Active Substance: PREDNISOLONE
  6. BRIMONIDINE TARTRATE [Concomitant]
     Active Substance: BRIMONIDINE TARTRATE
  7. DORZOLAMIDE HYDROCHLORIDE [Concomitant]
     Active Substance: DORZOLAMIDE HYDROCHLORIDE
  8. PROPRANOL HCL [Concomitant]
  9. ABILIFY [Concomitant]
     Active Substance: ARIPIPRAZOLE
  10. AZATHIOPRINE [Concomitant]
     Active Substance: AZATHIOPRINE
  11. BYSTOLIC [Concomitant]
     Active Substance: NEBIVOLOL HYDROCHLORIDE
  12. CYMBALTA [Concomitant]
     Active Substance: DULOXETINE HYDROCHLORIDE
  13. DICYCLOMINE [Concomitant]
     Active Substance: DICYCLOMINE HYDROCHLORIDE
  14. EVOXAC [Concomitant]
     Active Substance: CEVIMELINE HYDROCHLORIDE
  15. HYDROCORTISONE [Concomitant]
     Active Substance: HYDROCORTISONE
  16. LEVOTHYROXINE [Concomitant]
     Active Substance: LEVOTHYROXINE
  17. LUNESTA [Concomitant]
     Active Substance: ESZOPICLONE
  18. OMEPRAZOLE [Concomitant]
     Active Substance: OMEPRAZOLE
  19. PROMETHAZINE [Concomitant]
     Active Substance: PROMETHAZINE HYDROCHLORIDE
  20. TOPIRAMATE [Concomitant]
     Active Substance: TOPIRAMATE
  21. TRAMADOL HCL [Concomitant]
     Active Substance: TRAMADOL HYDROCHLORIDE
  22. ZOFRAN [Concomitant]
     Active Substance: ONDANSETRON HYDROCHLORIDE

REACTIONS (6)
  - Cystitis [Recovered/Resolved]
  - Headache [Unknown]
  - Ear infection [Recovered/Resolved]
  - Ear infection [Unknown]
  - Abdominal pain [Unknown]
  - Constipation [Unknown]

NARRATIVE: CASE EVENT DATE: 20230101
